FAERS Safety Report 8771622 (Version 2)
Quarter: 2012Q4

REPORT INFORMATION
  Report Type: 
  Country: US (occurrence: US)
  Receive Date: 20120905
  Receipt Date: 20121031
  Transmission Date: 20130627
  Serious: No
  Sender: FDA-Public Use
  Company Number: US-ASTRAZENECA-2012SE60139

PATIENT
  Age: 59 Year
  Sex: Female

DRUGS (2)
  1. DIOVAN HCTZ [Concomitant]
  2. TOPROL XL [Suspect]
     Route: 048

REACTIONS (3)
  - Diabetes mellitus [Unknown]
  - Pain [Unknown]
  - Disturbance in attention [Unknown]
